FAERS Safety Report 16833384 (Version 2)
Quarter: 2019Q4

REPORT INFORMATION
  Report Type: Spontaneous
  Country: EG (occurrence: EG)
  Receive Date: 20190920
  Receipt Date: 20191029
  Transmission Date: 20200122
  Serious: Yes (Death, Other)
  Sender: FDA-Public Use
  Company Number: EG-SA-2019SA261889

PATIENT
  Age: 9 Year
  Sex: Female
  Weight: 46 kg

DRUGS (2)
  1. CEREZYME [Suspect]
     Active Substance: IMIGLUCERASE
     Indication: GAUCHER^S DISEASE TYPE III
     Dosage: 60 MG/KG, QOW
     Route: 041
     Dates: start: 20080701, end: 20190725
  2. TIRATAM [Concomitant]
     Indication: SEIZURE
     Dosage: 30 MG/KG, QD
     Route: 065
     Dates: start: 20140414

REACTIONS (2)
  - Seizure [Fatal]
  - Acute respiratory distress syndrome [Fatal]

NARRATIVE: CASE EVENT DATE: 20190803
